FAERS Safety Report 16443618 (Version 2)
Quarter: 2019Q3

REPORT INFORMATION
  Report Type: Spontaneous
  Country: JP (occurrence: JP)
  Receive Date: 20190618
  Receipt Date: 20190711
  Transmission Date: 20191004
  Serious: Yes (Hospitalization, Other)
  Sender: FDA-Public Use
  Company Number: JP-SA-2019SA161064

PATIENT
  Age: 68 Year
  Sex: Female
  Weight: 57 kg

DRUGS (8)
  1. BASEN [VOGLIBOSE] [Concomitant]
     Indication: DIABETES MELLITUS
     Dosage: 0.2 UNK, TID
     Route: 048
  2. PYDOXAL [Concomitant]
     Active Substance: PYRIDOXAL
     Indication: RHEUMATOID ARTHRITIS
     Dosage: 10 MG, QD
     Route: 048
  3. KEVZARA [Suspect]
     Active Substance: SARILUMAB
     Indication: RHEUMATOID ARTHRITIS
     Dosage: 200 MG, QOW
     Route: 058
  4. REBAMIPIDE [Concomitant]
     Active Substance: REBAMIPIDE
     Indication: RHEUMATOID ARTHRITIS
     Dosage: 100 MG, TID
     Route: 048
  5. CANALIA COMBINATION [Concomitant]
     Active Substance: CANAGLIFLOZIN\TENELIGLIPTIN
     Indication: DIABETES MELLITUS
     Dosage: 1 UNK, QD
     Route: 048
  6. PREDNISOLONE. [Suspect]
     Active Substance: PREDNISOLONE
     Indication: RHEUMATOID ARTHRITIS
     Dosage: 6 MG, BID
     Route: 048
  7. ISCOTIN [Concomitant]
     Active Substance: ISONIAZID
     Indication: RHEUMATOID ARTHRITIS
     Dosage: 25 MG, QD
     Route: 048
  8. LYRICA [Concomitant]
     Active Substance: PREGABALIN
     Indication: RHEUMATOID ARTHRITIS
     Dosage: 100 MG, BID
     Route: 048

REACTIONS (4)
  - Cholecystitis acute [Recovered/Resolved]
  - Asthenia [Recovered/Resolved]
  - Abdominal pain [Recovered/Resolved]
  - Gallbladder rupture [Recovered/Resolved]

NARRATIVE: CASE EVENT DATE: 20190611
